FAERS Safety Report 10700447 (Version 8)
Quarter: 2021Q1

REPORT INFORMATION
  Report Type: Spontaneous
  Country: US (occurrence: US)
  Receive Date: 20150109
  Receipt Date: 20210128
  Transmission Date: 20210419
  Serious: Yes (Hospitalization, Other)
  Sender: FDA-Public Use
  Company Number: US-PFIZER INC-2015006684

PATIENT
  Age: 55 Year
  Sex: Female
  Weight: 77 kg

DRUGS (5)
  1. LYRICA [Suspect]
     Active Substance: PREGABALIN
     Indication: INTERVERTEBRAL DISC PROTRUSION
     Dosage: 450 MG, DAILY (75 MG, 6 TIMES A DAY)
     Route: 048
     Dates: start: 2006
  2. HYDROCODONE [Concomitant]
     Active Substance: HYDROCODONE
     Dosage: UNK
     Dates: start: 2007
  3. LYRICA [Suspect]
     Active Substance: PREGABALIN
     Dosage: 150 MG, 3X/DAY [TAKE 2(CAPSULES) BY MOUTH 3(THREE) TIMES A DAY]
     Route: 048
  4. DICLOFENAC [Concomitant]
     Active Substance: DICLOFENAC
     Dosage: UNK
     Dates: start: 2009
  5. LYRICA [Suspect]
     Active Substance: PREGABALIN
     Dosage: 75 MG 1?2 TID (THRICE A DAY)

REACTIONS (3)
  - Arthralgia [Recovered/Resolved]
  - Intentional product misuse [Unknown]
  - Hip deformity [Unknown]

NARRATIVE: CASE EVENT DATE: 2006
